FAERS Safety Report 13801016 (Version 1)
Quarter: 2017Q3

REPORT INFORMATION
  Report Type: Spontaneous
  Country: US (occurrence: US)
  Receive Date: 20170727
  Receipt Date: 20170727
  Transmission Date: 20171127
  Serious: No
  Sender: FDA-Public Use
  Company Number: US-BAYER-2017-143620

PATIENT
  Age: 67 Year
  Sex: Female
  Weight: 64 kg

DRUGS (4)
  1. METOPROLOL. [Concomitant]
     Active Substance: METOPROLOL
     Dosage: UNK
  2. BIOTIN [Concomitant]
     Active Substance: BIOTIN
     Dosage: UNK
  3. CLARITIN [Suspect]
     Active Substance: LORATADINE
     Dosage: 1 DF, UNK
     Route: 048
     Dates: start: 20170725, end: 20170725
  4. CALCIUM ACETATE. [Concomitant]
     Active Substance: CALCIUM ACETATE
     Dosage: UNK

REACTIONS (2)
  - Incorrect dosage administered [Unknown]
  - Product use in unapproved indication [Unknown]

NARRATIVE: CASE EVENT DATE: 20170725
